FAERS Safety Report 6414623-1 (Version None)
Quarter: 2009Q4

REPORT INFORMATION
  Report Type: 
  Country: None (occurrence: None)
  Receive Date: 20091026
  Receipt Date: 20091015
  Transmission Date: 20100525
  Serious: Yes (Hospitalization, Other)
  Sender: FDA-Public Use
  Company Number: US-BIOGENIDEC-2009BI011434

PATIENT
  Age: 42 Year
  Sex: Female
  Weight: 54 kg

DRUGS (11)
  1. TYSABRI [Suspect]
     Indication: MULTIPLE SCLEROSIS
     Route: 042
     Dates: start: 20081020, end: 20090112
  2. METHYLPREDNISOLONE 4MG TAB [Concomitant]
     Indication: MULTIPLE SCLEROSIS
     Route: 042
     Dates: start: 20090210, end: 20090210
  3. METHYLPREDNISOLONE 4MG TAB [Concomitant]
     Route: 042
     Dates: start: 20090219, end: 20090219
  4. DACLIZUMAB [Concomitant]
     Indication: MULTIPLE SCLEROSIS
     Route: 042
     Dates: start: 20090219, end: 20090219
  5. DITROPAN XL [Concomitant]
     Indication: BLADDER DISORDER
     Route: 048
     Dates: start: 20050301
  6. AMANTADINE HCL [Concomitant]
     Indication: FATIGUE
     Route: 048
     Dates: start: 20051201
  7. NEURONTIN [Concomitant]
     Indication: NEURALGIA
     Route: 048
     Dates: start: 20060301
  8. FOSAMAX [Concomitant]
     Indication: OSTEOPENIA
     Dates: start: 20050601
  9. PREDNISONE TAB [Concomitant]
  10. CALCIUM [Concomitant]
     Indication: OSTEOPENIA
     Dates: start: 20050601
  11. VITAMIN D [Concomitant]
     Indication: OSTEOPENIA
     Dates: start: 20050601

REACTIONS (1)
  - MANTLE CELL LYMPHOMA STAGE IV [None]
